FAERS Safety Report 18597887 (Version 1)
Quarter: 2020Q4

REPORT INFORMATION
  Report Type: Spontaneous
  Country: US (occurrence: US)
  Receive Date: 20201210
  Receipt Date: 20201210
  Transmission Date: 20210114
  Serious: Yes (Disabling)
  Sender: FDA-Public Use
  Company Number: US-009507513-2012USA001081

PATIENT
  Age: 26 Year
  Sex: Female
  Weight: 113.38 kg

DRUGS (1)
  1. NEXPLANON [Suspect]
     Active Substance: ETONOGESTREL
     Indication: CONTRACEPTION
     Dosage: 1 ROD EVERY (Q) 3 YEARS
     Route: 059
     Dates: start: 20201102

REACTIONS (4)
  - Pain [Not Recovered/Not Resolved]
  - Implant site pain [Not Recovered/Not Resolved]
  - Infection [Not Recovered/Not Resolved]
  - Inflammation [Not Recovered/Not Resolved]

NARRATIVE: CASE EVENT DATE: 2020
